FAERS Safety Report 10720032 (Version 4)
Quarter: 2015Q2

REPORT INFORMATION
  Report Type: Report from Study
  Country: CA (occurrence: CA)
  Receive Date: 20150119
  Receipt Date: 20150615
  Transmission Date: 20150821
  Serious: Yes (Hospitalization, Other)
  Sender: FDA-Public Use
  Company Number: CA-ROCHE-1418826

PATIENT
  Sex: Female

DRUGS (22)
  1. GRAVOL [Concomitant]
     Active Substance: DIMENHYDRINATE
  2. METHOTREXATE [Concomitant]
     Active Substance: METHOTREXATE
  3. M-ESLON [Concomitant]
     Active Substance: MORPHINE SULFATE
  4. VITAMIN B12 [Concomitant]
     Active Substance: CYANOCOBALAMIN
  5. PREVACID [Concomitant]
     Active Substance: LANSOPRAZOLE
  6. DOMPERIDONE [Concomitant]
     Active Substance: DOMPERIDONE
  7. ATIVAN [Concomitant]
     Active Substance: LORAZEPAM
  8. ATENOLOL. [Concomitant]
     Active Substance: ATENOLOL
  9. METFORMIN [Concomitant]
     Active Substance: METFORMIN HYDROCHLORIDE
  10. EFFEXOR [Concomitant]
     Active Substance: VENLAFAXINE HYDROCHLORIDE
  11. OXYBUTYNIN [Concomitant]
     Active Substance: OXYBUTYNIN
  12. FOLIC ACID. [Concomitant]
     Active Substance: FOLIC ACID
  13. ACETYLSALICYLIC ACID [Concomitant]
     Active Substance: ASPIRIN
  14. PLAQUENIL [Concomitant]
     Active Substance: HYDROXYCHLOROQUINE SULFATE
  15. ACTEMRA [Suspect]
     Active Substance: TOCILIZUMAB
     Indication: RHEUMATOID ARTHRITIS
     Route: 042
     Dates: start: 20120316
  16. ACTEMRA [Suspect]
     Active Substance: TOCILIZUMAB
     Route: 042
     Dates: start: 20120511
  17. VENTOLIN [Concomitant]
     Active Substance: ALBUTEROL SULFATE
  18. ACTEMRA [Suspect]
     Active Substance: TOCILIZUMAB
     Route: 042
     Dates: start: 20120530
  19. FLOVENT [Concomitant]
     Active Substance: FLUTICASONE PROPIONATE
  20. DICLOFENAC [Concomitant]
     Active Substance: DICLOFENAC
  21. PREDNISONE. [Concomitant]
     Active Substance: PREDNISONE
  22. LIPITOR [Concomitant]
     Active Substance: ATORVASTATIN CALCIUM

REACTIONS (9)
  - Myocardial infarction [Recovered/Resolved]
  - Pulmonary embolism [Unknown]
  - Renal failure [Unknown]
  - Blood glucose increased [Unknown]
  - Pain in extremity [Unknown]
  - Cholelithiasis [Unknown]
  - Urinary tract infection [Unknown]
  - Kidney infection [Unknown]
  - Carpal tunnel syndrome [Unknown]

NARRATIVE: CASE EVENT DATE: 2014
